FAERS Safety Report 7877395-X (Version None)
Quarter: 2011Q4

REPORT INFORMATION
  Report Type: 
  Country: None (occurrence: None)
  Receive Date: 20111031
  Receipt Date: 20111020
  Transmission Date: 20120403
  Serious: Yes (Other)
  Sender: FDA-Public Use
  Company Number: US-ASTRAZENECA-2011SE63314

PATIENT
  Age: 70 Year
  Sex: Female
  Weight: 80.3 kg

DRUGS (3)
  1. NEXIUM [Suspect]
     Indication: GASTROOESOPHAGEAL REFLUX DISEASE
     Route: 048
  2. BEXTRA [Suspect]
     Indication: BACK DISORDER
     Route: 048
     Dates: start: 19970101
  3. LISINOPRIL [Concomitant]
     Indication: HYPERTENSION

REACTIONS (8)
  - BONE PAIN [None]
  - HERPES ZOSTER [None]
  - GASTROOESOPHAGEAL REFLUX DISEASE [None]
  - ANXIETY [None]
  - UPPER LIMB FRACTURE [None]
  - DRUG INEFFECTIVE [None]
  - HYPOTENSION [None]
  - FATIGUE [None]
